FAERS Safety Report 10009720 (Version 1)
Quarter: 2014Q1

REPORT INFORMATION
  Report Type: Spontaneous
  Country: US (occurrence: US)
  Receive Date: 20140312
  Receipt Date: 20140312
  Transmission Date: 20141002
  Serious: No
  Sender: FDA-Public Use
  Company Number: US-INCYTE CORPORATION-2013IN000052

PATIENT
  Sex: 0

DRUGS (8)
  1. JAKAFI [Suspect]
     Indication: MYELOFIBROSIS
     Dosage: 15 MG, BID
     Route: 048
  2. HYDROCHLOROTHIAZIDE [Concomitant]
  3. XANAX [Concomitant]
  4. ASPIRIN [Concomitant]
     Dosage: 81 MG, UNK
  5. LEVOTHYROXINE [Concomitant]
  6. B COMPLEX [Concomitant]
  7. FISH OIL [Concomitant]
  8. VITAMIN D [Concomitant]

REACTIONS (2)
  - Influenza like illness [Not Recovered/Not Resolved]
  - Pyrexia [Not Recovered/Not Resolved]
